FAERS Safety Report 6610488-3 (Version None)
Quarter: 2010Q1

REPORT INFORMATION
  Report Type: 
  Country: None (occurrence: None)
  Receive Date: 20100302
  Receipt Date: 20100216
  Transmission Date: 20100710
  Serious: Yes (Hospitalization)
  Sender: FDA-Public Use
  Company Number: US-MYLANLABS-2010S1002531

PATIENT
  Age: 53 Year
  Sex: Female

DRUGS (3)
  1. ALPRAZOLAM [Suspect]
     Indication: INTENTIONAL OVERDOSE
  2. CITALOPRAM [Suspect]
     Indication: INTENTIONAL OVERDOSE
  3. VERAPAMIL [Suspect]
     Indication: INTENTIONAL OVERDOSE

REACTIONS (3)
  - ELECTROCARDIOGRAM QT PROLONGED [None]
  - INTENTIONAL OVERDOSE [None]
  - TORSADE DE POINTES [None]
